FAERS Safety Report 13537007 (Version 1)
Quarter: 2017Q2

REPORT INFORMATION
  Report Type: Spontaneous
  Country: US (occurrence: US)
  Receive Date: 20170511
  Receipt Date: 20170511
  Transmission Date: 20170830
  Serious: No
  Sender: FDA-Public Use
  Company Number: US-009507513-1704USA006090

PATIENT
  Age: 64 Year
  Sex: Male

DRUGS (8)
  1. VANCOMYCIN [Concomitant]
     Active Substance: VANCOMYCIN
     Indication: OSTEOMYELITIS
     Dosage: BETWEEN 15 AND 20 MICRO-G/ML, PLANNED 6-WEEK COURSE
  2. VANCOMYCIN [Concomitant]
     Active Substance: VANCOMYCIN
     Indication: CLOSTRIDIUM DIFFICILE COLITIS
     Dosage: UNK
     Route: 048
  3. GENTAMICIN. [Concomitant]
     Active Substance: GENTAMICIN
     Dosage: 80 MG TWO TIMES PER DAY FOR 7 DAYS
     Route: 042
  4. CUBICIN [Suspect]
     Active Substance: DAPTOMYCIN
     Indication: PSEUDOMONAS INFECTION
  5. CUBICIN [Suspect]
     Active Substance: DAPTOMYCIN
     Indication: OSTEOMYELITIS
  6. AZTREONAM. [Concomitant]
     Active Substance: AZTREONAM
     Dosage: 2 G  EVERY 12 HOURS FOR 2 WEEKS
     Route: 042
  7. ZERBAXA [Suspect]
     Active Substance: CEFTOLOZANE SULFATE\TAZOBACTAM SODIUM
     Indication: PSEUDOMONAS INFECTION
     Dosage: 1.5 G  EVERY 8 HOURS, PLANNED 6-WEEK COURSE
     Route: 042
  8. AMPICILLIN [Concomitant]
     Active Substance: AMPICILLIN
     Dosage: 2 G, EVERY 6 HOURS FOR A PLANNED DURATION OF 8 WEEKS
     Route: 042

REACTIONS (1)
  - Product use in unapproved indication [Unknown]
